FAERS Safety Report 9970314 (Version 1)
Quarter: 2014Q1

REPORT INFORMATION
  Report Type: Spontaneous
  Country: US (occurrence: None)
  Receive Date: 20140218
  Receipt Date: 20140218
  Transmission Date: 20141002
  Serious: Yes (Other)
  Sender: FDA-Public Use
  Company Number: OMPQ-PR-1307S-0927

PATIENT
  Age: 65 Year
  Sex: Female

DRUGS (2)
  1. OMNIPAQUE [Suspect]
     Indication: ABDOMINAL PAIN LOWER
     Route: 048
     Dates: start: 20130709, end: 20130709
  2. OMNIPAQUE [Suspect]
     Indication: DIAGNOSTIC PROCEDURE
     Route: 048
     Dates: start: 20130709, end: 20130709

REACTIONS (2)
  - Hypersensitivity [None]
  - Hypertension [None]
